FAERS Safety Report 11827892 (Version 1)
Quarter: 2015Q4

REPORT INFORMATION
  Report Type: Spontaneous
  Country: US (occurrence: US)
  Receive Date: 20151211
  Receipt Date: 20151211
  Transmission Date: 20160305
  Serious: No
  Sender: FDA-Public Use
  Company Number: PHEH2013US011824

PATIENT
  Sex: Female

DRUGS (3)
  1. SANDOSTATIN [Suspect]
     Active Substance: OCTREOTIDE ACETATE
     Dosage: UNK UKN, UNK
  2. SANDOSTATIN LAR DEPOT [Suspect]
     Active Substance: OCTREOTIDE ACETATE
     Indication: DIARRHOEA
     Dosage: UNK UKN, UNK
  3. SANDOSTATIN [Suspect]
     Active Substance: OCTREOTIDE ACETATE
     Dosage: UNK UKN, UNK
     Dates: start: 20130528

REACTIONS (2)
  - Injection site discomfort [Unknown]
  - Injection site irritation [Unknown]

NARRATIVE: CASE EVENT DATE: 20130528
